FAERS Safety Report 5030782-X (Version None)
Quarter: 2006Q2

REPORT INFORMATION
  Report Type: 
  Country: None (occurrence: None)
  Receive Date: 20060621
  Receipt Date: 20060413
  Transmission Date: 20061013
  Serious: Yes (Other)
  Sender: FDA-Public Use
  Company Number: JP-ROCHE-444316

PATIENT
  Age: 66 Year
  Sex: Female

DRUGS (7)
  1. TORSEMIDE [Suspect]
     Indication: CARDIAC FAILURE
     Route: 048
     Dates: start: 20060125, end: 20060228
  2. BLOPRESS [Concomitant]
     Dates: start: 20060125
  3. LANIRAPID [Concomitant]
     Dosage: TAKEN 25 JAN 2006 - 01 FEB 2006; 02 FEB 2006 - CONTINUING
     Dates: start: 20060125
  4. WARFARIN SODIUM [Concomitant]
     Dosage: TAKEN 24 JAN 2006-26 JAN 2006, 27 JAN 2006-29 JAN 2006, 30 JAN 2006-6 FEB 2006, 7 FEB 2006 - CONTIN+
     Dates: start: 20060124
  5. ARTIST [Concomitant]
     Dosage: TAKEN 25 JAN 2006-1 FEB 2006, 2 FEB 2006-8 FEB 2006, 9 FEB 2006 - CONTINUE
     Dates: start: 20060125
  6. RYTHMODAN [Concomitant]
  7. CRAVIT [Concomitant]
     Dates: start: 20060125, end: 20060201

REACTIONS (1)
  - PANCYTOPENIA [None]
